FAERS Safety Report 21639720 (Version 1)
Quarter: 2022Q4

REPORT INFORMATION
  Report Type: Spontaneous
  Country: DE (occurrence: DE)
  Receive Date: 20221124
  Receipt Date: 20221124
  Transmission Date: 20230113
  Serious: Yes (Other)
  Sender: FDA-Public Use
  Company Number: None

PATIENT
  Sex: Male

DRUGS (2)
  1. NEUPRO [Suspect]
     Active Substance: ROTIGOTINE
     Indication: Restless legs syndrome
     Dosage: UNK
     Dates: start: 2015
  2. LEVODOPA [Suspect]
     Active Substance: LEVODOPA
     Indication: Restless legs syndrome
     Dates: start: 2008, end: 2015

REACTIONS (11)
  - Erectile dysfunction [Unknown]
  - Behaviour disorder [Unknown]
  - Gambling disorder [Unknown]
  - Abnormal dreams [Unknown]
  - Middle insomnia [Unknown]
  - Paraphilia [Unknown]
  - Compulsions [Unknown]
  - Initial insomnia [Unknown]
  - Sexual abuse [Unknown]
  - Thinking abnormal [Unknown]
  - Libido increased [Unknown]

NARRATIVE: CASE EVENT DATE: 20190101
